FAERS Safety Report 9913638 (Version 1)
Quarter: 2014Q1

REPORT INFORMATION
  Report Type: Spontaneous
  Country: US (occurrence: None)
  Receive Date: 20140218
  Receipt Date: 20140218
  Transmission Date: 20141002
  Serious: Yes (Death, Hospitalization)
  Sender: FDA-Public Use
  Company Number: 2014-US-001713

PATIENT
  Age: 48 Year
  Sex: Female

DRUGS (8)
  1. FAZACLO [Suspect]
     Indication: SCHIZOPHRENIA SIMPLE
     Dates: start: 20061023
  2. TRAZODONE HCL (TRAZODONE HYDROCHLORIDE) [Concomitant]
  3. CELEXA (CITALOPRAM HYDROBROMIDE) [Suspect]
  4. TOPAMAX (TOPIRAMATE) [Concomitant]
  5. COGENTIN (BENZATROPINE MESILATE) [Concomitant]
  6. VISTARIL (HYDROXYZINE HYDROCHLORIDE) [Concomitant]
  7. VALPROIC ACID (VALPROIC ACID) [Suspect]
  8. HALDOL (HALOPERIDOL LACTATE) [Suspect]

REACTIONS (4)
  - Cerebrovascular accident [None]
  - Treatment noncompliance [None]
  - Drooling [None]
  - Sedation [None]
